FAERS Safety Report 15049574 (Version 1)
Quarter: 2018Q2

REPORT INFORMATION
  Report Type: Spontaneous
  Country: CA (occurrence: CA)
  Receive Date: 20180622
  Receipt Date: 20180622
  Transmission Date: 20180711
  Serious: Yes (Disabling)
  Sender: FDA-Public Use
  Company Number: CA-TEVA-2018-CA-909830

PATIENT
  Age: 25 Year
  Sex: Male

DRUGS (2)
  1. LEVETIRACETAM. [Suspect]
     Active Substance: LEVETIRACETAM
     Indication: SEIZURE
     Route: 048
  2. TEGRETOL XR [Concomitant]
     Active Substance: CARBAMAZEPINE

REACTIONS (3)
  - Irritability [Recovered/Resolved]
  - Product substitution issue [Recovered/Resolved]
  - Agitation [Recovered/Resolved]
